FAERS Safety Report 4639310-1 (Version None)
Quarter: 2005Q2

REPORT INFORMATION
  Report Type: 
  Country: None (occurrence: None)
  Receive Date: 20050418
  Receipt Date: 20050404
  Transmission Date: 20051028
  Serious: Yes (Hospitalization)
  Sender: FDA-Public Use
  Company Number: 2004091613

PATIENT
  Age: 76 Year
  Sex: Female
  Weight: 50.8029 kg

DRUGS (7)
  1. DETROL LA [Suspect]
     Indication: HYPERTONIC BLADDER
     Dosage: 2 MG (2 MG, 1 IN 1 D), ORAL
     Route: 048
     Dates: start: 20030601
  2. CITALOPRAM HYDROBROMIDE [Suspect]
     Indication: DEPRESSION
     Dates: start: 20031201
  3. CODEINE SUL TAB [Suspect]
     Indication: ILL-DEFINED DISORDER
     Dates: start: 20030101
  4. OXYCODONE HYDROCHLORIDE AND ACETAMINOPHEN [Suspect]
     Indication: ILL-DEFINED DISORDER
     Dates: start: 20030101
  5. OMEPRAZOLE [Concomitant]
  6. SINEMET [Concomitant]
  7. TERIPARATIDE (TERIPARATIDE) [Concomitant]

REACTIONS (13)
  - CONFUSIONAL STATE [None]
  - DEPRESSION [None]
  - DRUG DOSE OMISSION [None]
  - DRUG INTERACTION [None]
  - FALL [None]
  - HALLUCINATION [None]
  - HYPERSENSITIVITY [None]
  - LETHARGY [None]
  - MENTAL DISORDER [None]
  - NOCTURIA [None]
  - PELVIC FRACTURE [None]
  - SOMNOLENCE [None]
  - TREATMENT NONCOMPLIANCE [None]
